FAERS Safety Report 5195273-4 (Version None)
Quarter: 2006Q4

REPORT INFORMATION
  Report Type: 
  Country: None (occurrence: None)
  Receive Date: 20061229
  Receipt Date: 20061201
  Transmission Date: 20070319
  Serious: Yes (Other)
  Sender: FDA-Public Use
  Company Number: US-PFIZER INC-2006148783

PATIENT
  Sex: Female

DRUGS (3)
  1. LIPITOR [Suspect]
  2. CLONIDINE [Concomitant]
  3. AMIODARONE HCL [Concomitant]

REACTIONS (3)
  - CARDIAC PACEMAKER INSERTION [None]
  - FIBROMYALGIA [None]
  - MUSCULAR WEAKNESS [None]
